FAERS Safety Report 4309409-8 (Version None)
Quarter: 2004Q1

REPORT INFORMATION
  Report Type: 
  Country: None (occurrence: None)
  Receive Date: 20040301
  Receipt Date: 20040220
  Transmission Date: 20041129
  Serious: Yes (Other)
  Sender: FDA-Public Use
  Company Number: CA-JNJFOC-20030701196

PATIENT
  Age: 44 Year
  Sex: Female

DRUGS (28)
  1. REMICADE [Suspect]
     Indication: RHEUMATOID ARTHRITIS
     Dosage: SEE IMAGE
     Dates: start: 20010426, end: 20010426
  2. REMICADE [Suspect]
     Indication: RHEUMATOID ARTHRITIS
     Dosage: SEE IMAGE
     Dates: start: 20020522, end: 20020522
  3. REMICADE [Suspect]
     Indication: RHEUMATOID ARTHRITIS
     Dosage: SEE IMAGE
     Dates: start: 20020811, end: 20020811
  4. REMICADE [Suspect]
     Indication: RHEUMATOID ARTHRITIS
     Dosage: SEE IMAGE
     Dates: start: 20030325, end: 20030325
  5. REMICADE [Suspect]
     Indication: RHEUMATOID ARTHRITIS
     Dosage: SEE IMAGE
     Dates: start: 20010612
  6. REMICADE [Suspect]
     Indication: RHEUMATOID ARTHRITIS
     Dosage: SEE IMAGE
     Dates: start: 20011010
  7. REMICADE [Suspect]
     Indication: RHEUMATOID ARTHRITIS
     Dosage: SEE IMAGE
     Dates: start: 20040210
  8. K-DUR 10 [Concomitant]
  9. CELLCEPT [Concomitant]
  10. PREDNISONE [Concomitant]
  11. VIOXX [Concomitant]
  12. DIDROCAL (DIDRONEL PMO ^NORWICH EATON^) [Concomitant]
  13. COZAAR [Concomitant]
  14. LANOXIN [Concomitant]
  15. LASIX [Concomitant]
  16. ACULAR [Concomitant]
  17. FML (FLUOROMETHOLONE) [Concomitant]
  18. ALPHAGAN [Concomitant]
  19. OMEPRAZOLE [Concomitant]
  20. VITAMIN D [Concomitant]
  21. CALCIUM (CALCIUM) [Concomitant]
  22. COLACE (DOCUSATE SODIUM) [Concomitant]
  23. SENEKOT (SENNA FRUIT) [Concomitant]
  24. TYLENOL [Concomitant]
  25. ATIVAN [Concomitant]
  26. GLYCERIN SUPPOSITORY (GLYCEROL) [Concomitant]
  27. FLAREX (FLUOROMETHOLONE ACETATE) [Concomitant]
  28. COSOPT (COSOPT) [Concomitant]

REACTIONS (6)
  - BASAL CELL CARCINOMA [None]
  - CERVICAL SPINAL STENOSIS [None]
  - HERPES SIMPLEX [None]
  - LIP NEOPLASM MALIGNANT STAGE UNSPECIFIED [None]
  - LYMPHADENOPATHY [None]
  - SPINAL CORD COMPRESSION [None]
